FAERS Safety Report 9844881 (Version 1)
Quarter: 2014Q1

REPORT INFORMATION
  Report Type: Spontaneous
  Country: US (occurrence: None)
  Receive Date: 20140122
  Receipt Date: 20140122
  Transmission Date: 20141002
  Serious: Yes (Death)
  Sender: FDA-Public Use
  Company Number: B0960305A

PATIENT
  Age: 60 Year
  Sex: Female

DRUGS (4)
  1. DIAZEPAM (FORMULATION UNKNOWN) (GENERIC) (DIAZEPAM) [Suspect]
     Route: 048
  2. PARACETAMOL [Suspect]
     Route: 048
  3. BUPROPION HYDROCHLORIDE [Suspect]
     Route: 048
  4. GABAPENTIN [Suspect]

REACTIONS (2)
  - Completed suicide [None]
  - Exposure via ingestion [None]
